FAERS Safety Report 16521530 (Version 2)
Quarter: 2019Q3

REPORT INFORMATION
  Report Type: Spontaneous
  Country: JP (occurrence: JP)
  Receive Date: 20190703
  Receipt Date: 20190719
  Transmission Date: 20191004
  Serious: Yes (Death, Disabling, Other)
  Sender: FDA-Public Use
  Company Number: JP-AMGEN-JPNSP2018178187

PATIENT
  Age: 62 Year
  Sex: Male
  Weight: 55 kg

DRUGS (4)
  1. RANMARK [Suspect]
     Active Substance: DENOSUMAB
     Indication: METASTASES TO PELVIS
     Dosage: 120 MG, Q4WK,  TOTAL 25 TIMES
     Route: 058
     Dates: start: 20150105, end: 20170510
  2. RANMARK [Suspect]
     Active Substance: DENOSUMAB
     Indication: METASTASES TO SPINE
     Dosage: 120 MILLIGRAM, 120 MG, TOTAL 5 TIMES
     Route: 065
     Dates: start: 20170830, end: 20180213
  3. RANMARK [Suspect]
     Active Substance: DENOSUMAB
     Indication: METASTASES TO BONE
     Dosage: UNK
     Route: 065
  4. ZOMETA [Suspect]
     Active Substance: ZOLEDRONIC ACID
     Indication: PRODUCT USED FOR UNKNOWN INDICATION
     Dosage: UNK
     Route: 065
     Dates: start: 20120423, end: 20141208

REACTIONS (3)
  - Osteomyelitis [Not Recovered/Not Resolved]
  - Osteomyelitis [Not Recovered/Not Resolved]
  - Death [Fatal]

NARRATIVE: CASE EVENT DATE: 201502
